FAERS Safety Report 22614517 (Version 3)
Quarter: 2023Q4

REPORT INFORMATION
  Report Type: Spontaneous
  Country: US (occurrence: US)
  Receive Date: 20230619
  Receipt Date: 20231031
  Transmission Date: 20240109
  Serious: Yes (Hospitalization)
  Sender: FDA-Public Use
  Company Number: US-SA-SAC20230616000479

PATIENT
  Sex: Female

DRUGS (1)
  1. DUPIXENT [Suspect]
     Active Substance: DUPILUMAB
     Indication: Dermatitis atopic
     Dosage: 300 MG, QOW
     Route: 058

REACTIONS (7)
  - Psoriasis [Unknown]
  - Swelling of eyelid [Unknown]
  - Eye pruritus [Unknown]
  - Dry eye [Unknown]
  - Injection site bruising [Unknown]
  - Dermatitis atopic [Unknown]
  - Eczema [Unknown]
